FAERS Safety Report 14078440 (Version 1)
Quarter: 2017Q4

REPORT INFORMATION
  Report Type: Spontaneous
  Country: US (occurrence: US)
  Receive Date: 20171011
  Receipt Date: 20171011
  Transmission Date: 20180321
  Serious: No
  Sender: FDA-Public Use
  Company Number: None

PATIENT
  Age: 68 Year
  Sex: Female
  Weight: 72.9 kg

DRUGS (4)
  1. OLOPATADINE. [Concomitant]
     Active Substance: OLOPATADINE
  2. MELANTONIN [Concomitant]
  3. CALCIUM [Concomitant]
     Active Substance: CALCIUM
  4. LOTEMAX [Suspect]
     Active Substance: LOTEPREDNOL ETABONATE
     Indication: EYE IRRITATION
     Dosage: ?          QUANTITY:5 DROP(S);?
     Route: 047
     Dates: start: 20171005, end: 20171010

REACTIONS (4)
  - Pruritus [None]
  - Urticaria [None]
  - Hypoaesthesia [None]
  - Swollen tongue [None]

NARRATIVE: CASE EVENT DATE: 20171009
